FAERS Safety Report 10231025 (Version 2)
Quarter: 2014Q2

REPORT INFORMATION
  Report Type: Spontaneous
  Country: US (occurrence: US)
  Receive Date: 20140611
  Receipt Date: 20140611
  Transmission Date: 20141212
  Serious: Yes (Other)
  Sender: FDA-Public Use
  Company Number: US-BAYER-2014-084448

PATIENT
  Age: 84 Year
  Sex: Male
  Weight: 70.3 kg

DRUGS (8)
  1. ALEVE CAPLET [Suspect]
     Indication: PAIN IN EXTREMITY
     Dosage: 2 DF, QD
     Route: 048
     Dates: start: 2014, end: 20140602
  2. FISH OIL [Concomitant]
  3. MOVE FREE [Concomitant]
  4. MAGNESIUM [Concomitant]
  5. GABAPENTIN [Concomitant]
  6. MELATONIN [Concomitant]
  7. DONEPEZIL [Concomitant]
  8. POTASSIUM [POTASSIUM] [Concomitant]

REACTIONS (4)
  - Haematochezia [Not Recovered/Not Resolved]
  - Incorrect drug administration duration [None]
  - Hiatus hernia [Not Recovered/Not Resolved]
  - Gastric ulcer [Not Recovered/Not Resolved]
